FAERS Safety Report 8835951 (Version 1)
Quarter: 2012Q4

REPORT INFORMATION
  Report Type: 
  Country: NL (occurrence: NL)
  Receive Date: 20121011
  Receipt Date: 20121011
  Transmission Date: 20130627
  Serious: Yes (Other)
  Sender: FDA-Public Use
  Company Number: NL-AMGEN-NLDSP2012064322

PATIENT
  Age: 65 Year
  Sex: Female

DRUGS (14)
  1. ENBREL [Suspect]
     Indication: RHEUMATOID ARTHRITIS
     Dosage: 50 mg, weekly
     Dates: start: 20111121
  2. PLAQUENIL                          /00072602/ [Concomitant]
  3. BROMAZEPAM [Concomitant]
  4. SEROXAT CR [Concomitant]
  5. SIMVASTATIN [Concomitant]
  6. PREDNISON [Concomitant]
  7. FOLIC ACID [Concomitant]
  8. CALCICHEW [Concomitant]
  9. MTX                                /00113801/ [Concomitant]
  10. AMLODIPINE [Concomitant]
  11. PANTOZOL [Concomitant]
  12. PAROXETINE [Concomitant]
  13. ASCAL                              /00002702/ [Concomitant]
  14. CARBASALATE CALCIUM [Concomitant]

REACTIONS (4)
  - Urinary tract infection [Unknown]
  - Stress [Unknown]
  - Scan abnormal [Unknown]
  - Nasopharyngitis [Unknown]
